FAERS Safety Report 14950959 (Version 1)
Quarter: 2018Q2

REPORT INFORMATION
  Report Type: Spontaneous
  Country: DE (occurrence: DE)
  Receive Date: 20180530
  Receipt Date: 20180530
  Transmission Date: 20180711
  Serious: Yes (Hospitalization)
  Sender: FDA-Public Use
  Company Number: DE-AXELLIA-001703

PATIENT
  Age: 83 Year
  Sex: Female
  Weight: 68.5 kg

DRUGS (10)
  1. VANCOMYCIN [Suspect]
     Active Substance: VANCOMYCIN
     Indication: PRODUCT USED FOR UNKNOWN INDICATION
     Dosage: NK MG, DISCONTINUED ON 28-FEB-2017
     Dates: end: 20170228
  2. PREGABALIN. [Concomitant]
     Active Substance: PREGABALIN
     Dosage: STRENGTH 75 MG, 1-0-0-0
  3. METOPROLOL. [Concomitant]
     Active Substance: METOPROLOL
     Dosage: STRENGTH 95 MG, 1-0-0-0
  4. METAMIZOLE SODIUM [Concomitant]
     Active Substance: METAMIZOLE SODIUM
     Dosage: NK MG, 30-30-30-30
  5. ACETYLSALICYLIC ACID [Concomitant]
     Active Substance: ASPIRIN
     Dosage: STRENGTH 100 MG, 0-1-0-0
  6. TILIDINE [Concomitant]
     Active Substance: TILIDINE
     Dosage: STRENGTH 100/8 MG, 1-0-1-0
  7. PREDNISOLONE. [Concomitant]
     Active Substance: PREDNISOLONE
     Dosage: STRENGTH 10 MG, 1-0-0-0
  8. FUROSEMIDE. [Concomitant]
     Active Substance: FUROSEMIDE
     Dosage: STRENGTH 40 MG, 1-0-0-0
  9. SIMVASTATIN. [Concomitant]
     Active Substance: SIMVASTATIN
     Dosage: STRENGTH 20 MG, 0-0-0.5-0
  10. AMLODIPINE [Concomitant]
     Active Substance: AMLODIPINE BESYLATE
     Dosage: STRENGTH 5 MG, 0-0-1-0

REACTIONS (1)
  - Diarrhoea [Unknown]

NARRATIVE: CASE EVENT DATE: 20170303
